FAERS Safety Report 10052096 (Version 1)
Quarter: 2014Q2

REPORT INFORMATION
  Report Type: Spontaneous
  Country: FR (occurrence: FR)
  Receive Date: 20140402
  Receipt Date: 20140402
  Transmission Date: 20141212
  Serious: Yes (Hospitalization, Other)
  Sender: FDA-Public Use
  Company Number: FR-MERCK-1403FRA012186

PATIENT
  Age: 101 Year
  Sex: Male
  Weight: 88 kg

DRUGS (5)
  1. REBETOL [Suspect]
     Indication: HEPATITIS C
     Dosage: 600 MG, BID
     Route: 048
     Dates: start: 20110809
  2. LEVOTHYROX [Suspect]
     Indication: HYPOTHYROIDISM
     Dosage: 137.5 MICROGRAM, QD
     Route: 065
     Dates: start: 199503
  3. INEXIUM [Suspect]
     Dosage: 20 MG, QD
     Route: 065
     Dates: start: 20130925
  4. EXACYL [Suspect]
     Dosage: 1 VIAL, TID
     Route: 065
     Dates: start: 20130929, end: 20131009
  5. HELIXATE [Suspect]
     Dosage: 3000 IU, QD
     Route: 065
     Dates: start: 20130929, end: 20131002

REACTIONS (2)
  - Rectal adenocarcinoma [Not Recovered/Not Resolved]
  - Off label use [Unknown]
